FAERS Safety Report 18947453 (Version 2)
Quarter: 2021Q2

REPORT INFORMATION
  Report Type: Spontaneous
  Country: US (occurrence: US)
  Receive Date: 20210226
  Receipt Date: 20210407
  Transmission Date: 20210717
  Serious: No
  Sender: FDA-Public Use
  Company Number: US-BAYER-2021-083965

PATIENT
  Age: 50 Year
  Sex: Female

DRUGS (1)
  1. CLIMARA [Suspect]
     Active Substance: ESTRADIOL
     Indication: OSTEOPOROSIS PROPHYLAXIS
     Dosage: UNK
     Route: 062

REACTIONS (9)
  - Abnormal behaviour [Not Recovered/Not Resolved]
  - Poor quality device used [Not Recovered/Not Resolved]
  - Product storage error [None]
  - Blood oestrogen decreased [Not Recovered/Not Resolved]
  - Restlessness [Not Recovered/Not Resolved]
  - Device material issue [None]
  - Crying [Not Recovered/Not Resolved]
  - Alopecia [Not Recovered/Not Resolved]
  - Therapeutic product effect incomplete [Not Recovered/Not Resolved]

NARRATIVE: CASE EVENT DATE: 20210204
